FAERS Safety Report 14241253 (Version 1)
Quarter: 2017Q4

REPORT INFORMATION
  Report Type: Report from Study
  Country: US (occurrence: US)
  Receive Date: 20171201
  Receipt Date: 20171201
  Transmission Date: 20180321
  Serious: Yes (Hospitalization, Other)
  Sender: FDA-Public Use
  Company Number: US-ARALEZ PHARMACEUTICALS R+D INC.-2017-ARA-001495

PATIENT
  Age: 80 Year
  Sex: Female
  Weight: 62.9 kg

DRUGS (14)
  1. IRESSA [Suspect]
     Active Substance: GEFITINIB
     Dosage: REDUCED DOSE
     Route: 048
  2. ZOFRAN [Concomitant]
     Active Substance: ONDANSETRON HYDROCHLORIDE
     Indication: PRODUCT USED FOR UNKNOWN INDICATION
     Dosage: ONE TABLET EVERY EIGHT HOUR FOR 30 DAYS
     Route: 048
  3. CLINDAMYCIN. [Concomitant]
     Active Substance: CLINDAMYCIN
     Indication: PRODUCT USED FOR UNKNOWN INDICATION
     Dosage: TWO TIMES A DAY
     Route: 061
  4. AMLODIPINE [Concomitant]
     Active Substance: AMLODIPINE BESYLATE
     Indication: PRODUCT USED FOR UNKNOWN INDICATION
     Dosage: 10 MG, QD
     Route: 048
  5. METOPROLOL SUCCINATE. [Suspect]
     Active Substance: METOPROLOL SUCCINATE
     Indication: PRODUCT USED FOR UNKNOWN INDICATION
     Route: 048
  6. IRESSA [Suspect]
     Active Substance: GEFITINIB
     Indication: LUNG CARCINOMA CELL TYPE UNSPECIFIED STAGE 0
     Dosage: 250 MG, QD
     Route: 048
     Dates: start: 20170101
  7. TAGRISSO [Suspect]
     Active Substance: OSIMERTINIB
     Indication: LUNG NEOPLASM MALIGNANT
     Dosage: 80 MG, QD
     Route: 048
  8. TAGRISSO [Suspect]
     Active Substance: OSIMERTINIB
     Dosage: 40 MG, QD
     Route: 048
     Dates: start: 20171006
  9. LOMOTIL [Concomitant]
     Active Substance: ATROPINE SULFATE\DIPHENOXYLATE HYDROCHLORIDE
     Indication: DIARRHOEA
     Dosage: ONE TABLET EVERY SIX HOUR AS REQUIRED
     Route: 048
  10. DIAZEPAM. [Concomitant]
     Active Substance: DIAZEPAM
     Indication: PRODUCT USED FOR UNKNOWN INDICATION
     Dosage: 5 MG, QD
     Route: 048
  11. METOPROLOL. [Suspect]
     Active Substance: METOPROLOL
     Indication: PRODUCT USED FOR UNKNOWN INDICATION
     Dosage: UNK
     Route: 065
  12. MAXZIDE [Concomitant]
     Active Substance: HYDROCHLOROTHIAZIDE\TRIAMTERENE
     Indication: PRODUCT USED FOR UNKNOWN INDICATION
     Dosage: 25- 37.5 MG, QD
     Route: 048
  13. ONDANSETRON [Concomitant]
     Active Substance: ONDANSETRON
     Indication: PRODUCT USED FOR UNKNOWN INDICATION
     Route: 065
  14. IRESSA [Suspect]
     Active Substance: GEFITINIB
     Dosage: 250 MG, QOD
     Route: 048

REACTIONS (21)
  - Haemoglobin decreased [Recovering/Resolving]
  - Abdominal discomfort [Unknown]
  - Gastritis [Recovering/Resolving]
  - Cerebral atrophy [Unknown]
  - Liver function test decreased [Unknown]
  - Cardiac disorder [Unknown]
  - Malignant neoplasm progression [Unknown]
  - Metastases to central nervous system [Unknown]
  - Nausea [Unknown]
  - Diarrhoea [Unknown]
  - Metastases to meninges [Unknown]
  - Hepatic haemorrhage [Unknown]
  - Malaise [Unknown]
  - Decreased appetite [Unknown]
  - Haemorrhoids [Recovering/Resolving]
  - Melaena [Unknown]
  - Haemorrhage [Unknown]
  - Constipation [Recovering/Resolving]
  - Flatulence [Unknown]
  - Hepatic enzyme increased [Unknown]
  - Blister [Unknown]

NARRATIVE: CASE EVENT DATE: 20170302
